FAERS Safety Report 18787284 (Version 1)
Quarter: 2021Q1

REPORT INFORMATION
  Report Type: Spontaneous
  Country: US (occurrence: US)
  Receive Date: 20210126
  Receipt Date: 20210126
  Transmission Date: 20210419
  Serious: No
  Sender: FDA-Public Use
  Company Number: US-ACELRX PHARMACEUTICALS, INC-ACEL20210010

PATIENT
  Age: 29 Year
  Sex: Male

DRUGS (1)
  1. DSUVIA [Suspect]
     Active Substance: SUFENTANIL
     Indication: PAIN
     Route: 060
     Dates: start: 20201119, end: 20201119

REACTIONS (2)
  - Paraesthesia [Recovered/Resolved]
  - Hypoaesthesia [Recovered/Resolved]

NARRATIVE: CASE EVENT DATE: 20201119
